FAERS Safety Report 4512519-3 (Version None)
Quarter: 2004Q4

REPORT INFORMATION
  Report Type: 
  Country: None (occurrence: None)
  Receive Date: 20041008
  Receipt Date: 20040824
  Transmission Date: 20050328
  Serious: Yes (Other)
  Sender: FDA-Public Use
  Company Number: 378575

PATIENT
  Sex: 0

DRUGS (1)
  1. FUZEON [Suspect]
     Indication: DRUG USE FOR UNKNOWN INDICATION
     Dosage: 90 MG/CC SUBCUTANEOUS
     Route: 058

REACTIONS (5)
  - HYPERSENSITIVITY [None]
  - HYPERTENSION [None]
  - NAUSEA [None]
  - URTICARIA [None]
  - VOMITING [None]
